FAERS Safety Report 15566841 (Version 1)
Quarter: 2018Q4

REPORT INFORMATION
  Report Type: Spontaneous
  Country: US (occurrence: US)
  Receive Date: 20181030
  Receipt Date: 20181030
  Transmission Date: 20190205
  Serious: No
  Sender: FDA-Public Use
  Company Number: US-009507513-1810USA000492

PATIENT
  Sex: Female

DRUGS (1)
  1. NEXPLANON [Suspect]
     Active Substance: ETONOGESTREL
     Indication: CONTRACEPTION
     Dosage: 1 IMPLANT, 68 MG, ONCE
     Route: 059
     Dates: start: 20180203, end: 201806

REACTIONS (2)
  - Mood swings [Unknown]
  - Menorrhagia [Unknown]

NARRATIVE: CASE EVENT DATE: 2018
